FAERS Safety Report 21793947 (Version 1)
Quarter: 2022Q4

REPORT INFORMATION
  Report Type: Spontaneous
  Country: FR (occurrence: FR)
  Receive Date: 20221229
  Receipt Date: 20221229
  Transmission Date: 20230113
  Serious: Yes (Life-Threatening)
  Sender: FDA-Public Use
  Company Number: None

PATIENT
  Age: 33 Year
  Sex: Male
  Weight: 75 kg

DRUGS (6)
  1. ARIPIPRAZOLE [Suspect]
     Active Substance: ARIPIPRAZOLE
     Indication: Psychotic disorder
     Dosage: 10 MILLIGRAM, 1 TOTAL
     Route: 048
     Dates: start: 20221006, end: 20221006
  2. LOXAPINE [Suspect]
     Active Substance: LOXAPINE
     Indication: Psychotic disorder
     Dosage: 25 MILLIGRAM, Q8H
     Route: 048
     Dates: start: 20221005, end: 20221006
  3. MIANSERIN HYDROCHLORIDE [Concomitant]
     Active Substance: MIANSERIN HYDROCHLORIDE
     Indication: Psychotic disorder
     Dosage: 10 MILLIGRAM, QD (24 HOURS)
     Route: 048
     Dates: start: 20221004, end: 20221006
  4. LORAZEPAM [Concomitant]
     Active Substance: LORAZEPAM
     Indication: Psychotic disorder
     Dosage: 2.5 MILLIGRAM, Q8H
     Route: 048
     Dates: start: 20221003, end: 20221006
  5. VENLAFAXINE [Concomitant]
     Active Substance: VENLAFAXINE HYDROCHLORIDE
     Indication: Depression
     Dosage: 150 MILLIGRAM, QD
     Route: 048
     Dates: start: 20220926
  6. CYAMEMAZINE [Concomitant]
     Active Substance: CYAMEMAZINE
     Indication: Psychotic disorder
     Dosage: 25 MILLIGRAM, QD
     Route: 048
     Dates: start: 20221004, end: 20221006

REACTIONS (1)
  - Spasmodic dysphonia [Recovered/Resolved]

NARRATIVE: CASE EVENT DATE: 20221006
